FAERS Safety Report 5307268-8 (Version None)
Quarter: 2007Q2

REPORT INFORMATION
  Report Type: 
  Country: None (occurrence: None)
  Receive Date: 20070425
  Receipt Date: 20070419
  Transmission Date: 20071010
  Serious: Yes (Hospitalization)
  Sender: FDA-Public Use
  Company Number: FR-GLAXOSMITHKLINE-B0467729A

PATIENT
  Age: 82 Year
  Sex: Female

DRUGS (6)
  1. ALLOPURINOL [Suspect]
     Dosage: 200MG PER DAY
     Route: 048
  2. HEMIGOXINE NATIVELLE [Suspect]
     Dosage: .125MG PER DAY
     Route: 048
  3. LASIX [Suspect]
     Dosage: 40MG PER DAY
     Route: 048
  4. CORDARONE [Suspect]
     Dosage: 200MG PER DAY
     Route: 048
  5. ALDACTONE [Suspect]
     Dosage: 50MG PER DAY
     Route: 048
  6. COZAAR [Suspect]
     Dosage: 50MG FOUR TIMES PER DAY
     Route: 048

REACTIONS (4)
  - CERVICAL VERTEBRAL FRACTURE [None]
  - FALL [None]
  - HEAD INJURY [None]
  - MALAISE [None]
